FAERS Safety Report 20421041 (Version 1)
Quarter: 2022Q1

REPORT INFORMATION
  Report Type: Spontaneous
  Country: US (occurrence: None)
  Receive Date: 20220203
  Receipt Date: 20220203
  Transmission Date: 20220424
  Serious: Yes (Death)
  Sender: FDA-Public Use
  Company Number: None

PATIENT
  Age: 71 Year
  Sex: Male

DRUGS (2)
  1. RITUXIMAB [Suspect]
     Active Substance: RITUXIMAB
     Indication: Follicular lymphoma
     Dosage: 700 MG ONCE IV
     Route: 042
     Dates: start: 20220126, end: 20220126
  2. RITUXIMAB [Suspect]
     Active Substance: RITUXIMAB
     Indication: Metastases to bone
     Dosage: FREQUENCY : ONCE;?
     Route: 042
     Dates: start: 20220126, end: 20220126

REACTIONS (1)
  - Death [None]

NARRATIVE: CASE EVENT DATE: 20220126
